FAERS Safety Report 8091534-X (Version None)
Quarter: 2012Q1

REPORT INFORMATION
  Report Type: 
  Country: None (occurrence: None)
  Receive Date: 20120129
  Receipt Date: 20110912
  Transmission Date: 20120608
  Serious: No
  Sender: FDA-Public Use
  Company Number: US-ABBOTT-11P-163-0853571-00

PATIENT
  Sex: Male
  Weight: 77.18 kg

DRUGS (6)
  1. BUPROPION HYDROCHLORIDE [Concomitant]
     Indication: DEPRESSION
  2. HUMIRA [Suspect]
     Indication: PSORIASIS
  3. IBUPROFEN (ADVIL) [Concomitant]
     Indication: HEADACHE
  4. PRILOSEC OTC [Concomitant]
     Indication: GASTRIC DISORDER
  5. UNNAMED ATIVAN TYPE DRUG [Concomitant]
     Indication: DEPRESSION
  6. MIRTAZAPINE [Concomitant]
     Indication: DEPRESSION

REACTIONS (5)
  - COUGH [None]
  - INFLUENZA [None]
  - OROPHARYNGEAL PAIN [None]
  - NASOPHARYNGITIS [None]
  - GINGIVAL INFECTION [None]
